FAERS Safety Report 8009670-2 (Version None)
Quarter: 2011Q4

REPORT INFORMATION
  Report Type: 
  Country: None (occurrence: None)
  Receive Date: 20111228
  Receipt Date: 20111220
  Transmission Date: 20120403
  Serious: No
  Sender: FDA-Public Use
  Company Number: US-BIOGENIDEC-2011BI033030

PATIENT
  Sex: Female

DRUGS (1)
  1. TYSABRI [Suspect]
     Indication: MULTIPLE SCLEROSIS
     Route: 042
     Dates: start: 20110822

REACTIONS (7)
  - HEADACHE [None]
  - GAIT DISTURBANCE [None]
  - VISUAL IMPAIRMENT [None]
  - NECK PAIN [None]
  - UPPER EXTREMITY MASS [None]
  - CLUSTER HEADACHE [None]
  - FATIGUE [None]
